FAERS Safety Report 15653854 (Version 1)
Quarter: 2018Q4

REPORT INFORMATION
  Report Type: Spontaneous
  Country: US (occurrence: US)
  Receive Date: 20181123
  Receipt Date: 20181123
  Transmission Date: 20190205
  Serious: Yes (Other)
  Sender: FDA-Public Use
  Company Number: None

PATIENT
  Sex: Female
  Weight: 86.18 kg

DRUGS (2)
  1. IBUPROFEN. [Concomitant]
     Active Substance: IBUPROFEN
  2. LILETTA [Suspect]
     Active Substance: LEVONORGESTREL
     Dates: start: 20181121, end: 20181122

REACTIONS (7)
  - Complication of device removal [None]
  - Pelvic pain [None]
  - Haemorrhage [None]
  - Pyrexia [None]
  - Vaginal haemorrhage [None]
  - Procedural complication [None]
  - Muscle spasms [None]
